FAERS Safety Report 7123126-0 (Version None)
Quarter: 2010Q4

REPORT INFORMATION
  Report Type: 
  Country: None (occurrence: None)
  Receive Date: 20101125
  Receipt Date: 20101119
  Transmission Date: 20110411
  Serious: Yes (Other)
  Sender: FDA-Public Use
  Company Number: US-BIOGENIDEC-2010BI041200

PATIENT
  Age: 49 Year
  Sex: Female

DRUGS (1)
  1. AVONEX [Suspect]
     Indication: MULTIPLE SCLEROSIS
     Route: 030
     Dates: start: 20100416

REACTIONS (9)
  - BLINDNESS [None]
  - CENTRAL NERVOUS SYSTEM INFECTION [None]
  - HYPOAESTHESIA [None]
  - MEMORY IMPAIRMENT [None]
  - PARAESTHESIA [None]
  - SOMNOLENCE [None]
  - SWOLLEN TONGUE [None]
  - SYNCOPE [None]
  - VISION BLURRED [None]
